FAERS Safety Report 8114184-5 (Version None)
Quarter: 2012Q1

REPORT INFORMATION
  Report Type: 
  Country: None (occurrence: None)
  Receive Date: 20120205
  Receipt Date: 20110427
  Transmission Date: 20120608
  Serious: No
  Sender: FDA-Public Use
  Company Number: US-ALLERGAN-1105842US

PATIENT
  Age: 52 Year
  Sex: Male

DRUGS (1)
  1. PRED FORTE [Suspect]
     Indication: UVEITIS
     Dosage: 1 GTT, QOD
     Route: 047
     Dates: start: 20110401, end: 20110415

REACTIONS (1)
  - DRUG INEFFECTIVE [None]
